FAERS Safety Report 9180626 (Version 1)
Quarter: 2013Q1

REPORT INFORMATION
  Report Type: Spontaneous
  Country: GB (occurrence: None)
  Receive Date: 20130320
  Receipt Date: 20130320
  Transmission Date: 20140127
  Serious: Yes (Other)
  Sender: FDA-Public Use
  Company Number: 2013-04811

PATIENT
  Sex: Female

DRUGS (1)
  1. TRAMADOL HYDROCHLORIDE (TRAMADOL HYDR) [Suspect]
     Indication: TENDONITIS
     Route: 048

REACTIONS (6)
  - Hallucination [None]
  - Insomnia [None]
  - Hyperhidrosis [None]
  - Flushing [None]
  - Nausea [None]
  - Serotonin syndrome [None]
